FAERS Safety Report 10912840 (Version 1)
Quarter: 2015Q1

REPORT INFORMATION
  Report Type: Spontaneous
  Country: CA (occurrence: CA)
  Receive Date: 20150313
  Receipt Date: 20150313
  Transmission Date: 20150721
  Serious: Yes (Disabling, Other)
  Sender: FDA-Public Use
  Company Number: CA-TEVA-547234ACC

PATIENT
  Age: 30 Year
  Sex: Female
  Weight: 45.4 kg

DRUGS (5)
  1. ADVAIR 250 [Concomitant]
     Dosage: UNKNOWN FORM STRENGTH
     Route: 055
  2. SULFUR SOAP [Concomitant]
     Dosage: UNKNOWN FORM STRENGHT
     Route: 065
  3. APO-SALVENT [Concomitant]
     Active Substance: ALBUTEROL
     Dosage: UNKNOWN FORM STRENGTH
     Route: 065
  4. MINOCYCLINE [Suspect]
     Active Substance: MINOCYCLINE\MINOCYCLINE HYDROCHLORIDE
     Indication: ACNE CYSTIC
     Dosage: 100 MILLIGRAM DAILY;
     Route: 048
  5. BENZOYL PEROXIDE LOTION [Concomitant]
     Dosage: UNKNOWN FORM STRENGTH
     Route: 065

REACTIONS (2)
  - Migraine with aura [Recovered/Resolved]
  - Cerebrovascular accident [Recovered/Resolved]
